FAERS Safety Report 12449432 (Version 2)
Quarter: 2016Q3

REPORT INFORMATION
  Report Type: Report from Study
  Country: DE (occurrence: DE)
  Receive Date: 20160608
  Receipt Date: 20160713
  Transmission Date: 20161109
  Serious: Yes (Hospitalization)
  Sender: FDA-Public Use
  Company Number: DE-BIOGEN-2016BI00195631

PATIENT
  Sex: Female
  Weight: 79 kg

DRUGS (2)
  1. TIZANIDIN [Concomitant]
     Indication: MUSCLE SPASTICITY
     Route: 048
     Dates: start: 20151111
  2. TYSABRI [Suspect]
     Active Substance: NATALIZUMAB
     Indication: MULTIPLE SCLEROSIS
     Route: 042
     Dates: start: 20080310

REACTIONS (1)
  - Osteoarthritis [Unknown]
